FAERS Safety Report 8573661-3 (Version None)
Quarter: 2012Q2

REPORT INFORMATION
  Report Type: 
  Country: None (occurrence: None)
  Receive Date: 20120423
  Receipt Date: 20100713
  Transmission Date: 20120825
  Serious: Yes (Life-Threatening, Hospitalization)
  Sender: FDA-Public Use
  Company Number: PHHY2010US26813

PATIENT
  Age: 12 Year
  Sex: Male

DRUGS (3)
  1. CHEMOTHERAPEUTICS NOS (NO INGREDIENTS/SUBSTANCES) [Concomitant]
  2. EXJADE [Suspect]
     Indication: LYMPHATIC DISORDER
     Dosage: 2000 MG, QD, ORAL
     Route: 048
  3. EXJADE [Suspect]
     Indication: BLOOD DISORDER
     Dosage: 2000 MG, QD, ORAL
     Route: 048

REACTIONS (4)
  - TREATMENT NONCOMPLIANCE [None]
  - NEOPLASM MALIGNANT [None]
  - ACUTE MYELOID LEUKAEMIA [None]
  - BONE MARROW TRANSPLANT [None]
